FAERS Safety Report 15631580 (Version 7)
Quarter: 2022Q4

REPORT INFORMATION
  Report Type: Report from Study
  Country: US (occurrence: US)
  Receive Date: 20181119
  Receipt Date: 20221212
  Transmission Date: 20230113
  Serious: Yes (Other)
  Sender: FDA-Public Use
  Company Number: US-ARIAD PHARMACEUTICALS, INC-2017US009116

PATIENT
  Age: 52 Year
  Sex: Male

DRUGS (6)
  1. PONATINIB [Suspect]
     Active Substance: PONATINIB
     Indication: Acute lymphocytic leukaemia
     Dosage: 45 MILLIGRAM, QD
     Route: 048
     Dates: start: 20170719
  2. PONATINIB [Suspect]
     Active Substance: PONATINIB
     Indication: Embolism venous
     Dosage: 15 MILLIGRAM, QD
     Route: 048
  3. ASPIRIN [Concomitant]
     Active Substance: ASPIRIN
     Dosage: UNK
     Route: 065
  4. SIMVASTATIN [Concomitant]
     Active Substance: SIMVASTATIN
     Dosage: UNK
     Route: 065
  5. TADALAFIL [Concomitant]
     Active Substance: TADALAFIL
     Dosage: UNK
     Route: 065
  6. VITAMIN D [Concomitant]
     Active Substance: VITAMIN D NOS
     Dosage: UNK
     Route: 065

REACTIONS (22)
  - Bone marrow transplant [Unknown]
  - Metastases to lung [Unknown]
  - Erectile dysfunction [Unknown]
  - Pancytopenia [Unknown]
  - Soft tissue mass [Unknown]
  - Hypersensitivity [Unknown]
  - Axillary pain [Recovered/Resolved]
  - Anorectal discomfort [Unknown]
  - Salivary gland pain [Recovered/Resolved]
  - Proctalgia [Unknown]
  - Blood lactate dehydrogenase abnormal [Unknown]
  - Gastric infection [Unknown]
  - Liver function test increased [Unknown]
  - Burning sensation [Unknown]
  - Insomnia [Unknown]
  - Rash [Unknown]
  - Vomiting [Unknown]
  - Nausea [Unknown]
  - Pain [Unknown]
  - Pain in extremity [Unknown]
  - Off label use [Unknown]
  - Product dose omission issue [Unknown]

NARRATIVE: CASE EVENT DATE: 20170928
